FAERS Safety Report 10776445 (Version 2)
Quarter: 2015Q3

REPORT INFORMATION
  Report Type: Spontaneous
  Country: US (occurrence: US)
  Receive Date: 20150209
  Receipt Date: 20150730
  Transmission Date: 20151125
  Serious: No
  Sender: FDA-Public Use
  Company Number: US-GILEAD-2013-0078433

PATIENT
  Age: 47 Year
  Sex: Female
  Weight: 63.49 kg

DRUGS (7)
  1. RANEXA [Suspect]
     Active Substance: RANOLAZINE
     Dosage: 500 MG, QD
     Route: 048
     Dates: start: 20130508, end: 20130515
  2. MAGNESIUM OXIDE. [Concomitant]
     Active Substance: MAGNESIUM OXIDE
  3. ASPIRIN. [Concomitant]
     Active Substance: ASPIRIN
     Dosage: 81 MG, UNK
  4. VITAMIN D [Concomitant]
     Active Substance: CHOLECALCIFEROL
  5. RANEXA [Suspect]
     Active Substance: RANOLAZINE
     Indication: PRINZMETAL ANGINA
     Dosage: 125 MG IN THE MORNING AND 500 MG AT NIGHT
     Route: 048
     Dates: start: 2011, end: 2011
  6. BYSTOLIC [Concomitant]
     Active Substance: NEBIVOLOL HYDROCHLORIDE
     Dosage: 2.5 MG, UNK
  7. DILTIAZEM [Concomitant]
     Active Substance: DILTIAZEM
     Dosage: 120 MG, QD

REACTIONS (12)
  - Dyspnoea [Unknown]
  - Aspartate aminotransferase increased [Recovered/Resolved with Sequelae]
  - Chest discomfort [Unknown]
  - Dizziness [Unknown]
  - Fatigue [Unknown]
  - Product preparation error [Recovered/Resolved]
  - Nausea [Unknown]
  - Asthenia [Unknown]
  - Alanine aminotransferase increased [Recovered/Resolved with Sequelae]
  - Weight increased [Unknown]
  - Dizziness [Unknown]
  - Chest pain [Recovered/Resolved]

NARRATIVE: CASE EVENT DATE: 20110830
